FAERS Safety Report 16947555 (Version 1)
Quarter: 2019Q4

REPORT INFORMATION
  Report Type: Spontaneous
  Country: US (occurrence: US)
  Receive Date: 20191022
  Receipt Date: 20191022
  Transmission Date: 20200122
  Serious: No
  Sender: FDA-Public Use
  Company Number: US-B.BRAUN MEDICAL INC.-2075932

PATIENT
  Age: 78 Year
  Sex: Female

DRUGS (1)
  1. CEFAZOLIN FOR INJECTION USP AND DEXTROSE INJECTION USP 0264-3103-11 (N [Suspect]
     Active Substance: CEFAZOLIN
     Dates: start: 20191010

REACTIONS (1)
  - Renal pain [None]

NARRATIVE: CASE EVENT DATE: 20191011
